FAERS Safety Report 7001008-2 (Version None)
Quarter: 2010Q3

REPORT INFORMATION
  Report Type: 
  Country: None (occurrence: None)
  Receive Date: 20100920
  Receipt Date: 20100407
  Transmission Date: 20110219
  Serious: No
  Sender: FDA-Public Use
  Company Number: US-ASTRAZENECA-2010SE16019

PATIENT
  Age: 20020 Day
  Sex: Male
  Weight: 102.1 kg

DRUGS (6)
  1. SEROQUEL [Suspect]
     Route: 048
     Dates: start: 20100101
  2. PLAVIX [Concomitant]
     Route: 048
     Dates: start: 20100101
  3. ZOLPIDEM TARTRATE [Concomitant]
     Indication: INSOMNIA
     Route: 048
     Dates: start: 20100101
  4. BUPROPION HCL [Concomitant]
     Dosage: TAKE 1 DAIY FOR 14 DAYS THEN INCREASE TO 1 TWICE DAILY
     Dates: start: 20100101
  5. SIMVASTATIN [Concomitant]
     Route: 048
     Dates: start: 20100101
  6. ALLOPURINOL [Concomitant]
     Dates: start: 20100101

REACTIONS (1)
  - BURSITIS [None]
